FAERS Safety Report 22027988 (Version 1)
Quarter: 2023Q1

REPORT INFORMATION
  Report Type: Spontaneous
  Country: US (occurrence: None)
  Receive Date: 20230220
  Receipt Date: 20230220
  Transmission Date: 20230418
  Serious: No
  Sender: FDA-Public Use
  Company Number: None

PATIENT
  Age: 27 Year
  Sex: Female
  Weight: 83.25 kg

DRUGS (1)
  1. NEXTSTELLIS [Suspect]
     Active Substance: DROSPIRENONE\ESTETROL MONOHYDRATE
     Indication: Contraception
     Dosage: OTHER QUANTITY : 1 TABLET(S);?FREQUENCY : DAILY;?
     Route: 048
     Dates: start: 20230112, end: 20230220

REACTIONS (10)
  - Mood swings [None]
  - Abdominal distension [None]
  - Adjustment disorder with depressed mood [None]
  - Pain [None]
  - Nausea [None]
  - Product dose omission in error [None]
  - Pyrexia [None]
  - Headache [None]
  - Dizziness [None]
  - Dysuria [None]

NARRATIVE: CASE EVENT DATE: 20230220
